FAERS Safety Report 6146363-0 (Version None)
Quarter: 2009Q2

REPORT INFORMATION
  Report Type: 
  Country: None (occurrence: None)
  Receive Date: 20090407
  Receipt Date: 20090403
  Transmission Date: 20091009
  Serious: Yes (Hospitalization)
  Sender: FDA-Public Use
  Company Number: JP-BRISTOL-MYERS SQUIBB COMPANY-14573547

PATIENT
  Age: 66 Year
  Sex: Male

DRUGS (2)
  1. CARBOPLATIN [Suspect]
     Indication: NON-SMALL CELL LUNG CANCER
     Dosage: 1 DOSAGE FORM - 4.5 AUC. INITIAL DOSE 6 AUC ON 01DEC08.
     Route: 042
     Dates: start: 20090303, end: 20090303
  2. ABRAXANE [Suspect]
     Indication: NON-SMALL CELL LUNG CANCER
     Dosage: INJECTABLE SUSP PACLITAXEL PROTEIN BOUND PART(ALBUMIN), 1ST DOSE:100 MG/M2 ON 01DEC08.
     Route: 042
     Dates: start: 20090317, end: 20090317

REACTIONS (1)
  - HEADACHE [None]
